FAERS Safety Report 4642980-5 (Version None)
Quarter: 2005Q2

REPORT INFORMATION
  Report Type: 
  Country: None (occurrence: None)
  Receive Date: 20050422
  Receipt Date: 20050201
  Transmission Date: 20051028
  Serious: Yes (Hospitalization)
  Sender: FDA-Public Use
  Company Number: DE-ABBOTT-05P-062-0289378-00

PATIENT
  Sex: Female
  Weight: 90 kg

DRUGS (7)
  1. HUMIRA [Suspect]
     Indication: RHEUMATOID ARTHRITIS
     Route: 058
     Dates: start: 20031113, end: 20041221
  2. HUMIRA [Suspect]
  3. COMERCIAL HUMIRA [Concomitant]
     Indication: RHEUMATOID ARTHRITIS
     Route: 058
     Dates: start: 20031007, end: 20041221
  4. RADIOIODINE THERAPY [Concomitant]
     Indication: HYPERTHYROIDISM
     Dates: start: 19980101
  5. L THYROXCIN [Concomitant]
     Indication: HYPOTHYROIDISM
     Dates: start: 19990701
  6. VINCAMIN [Concomitant]
     Indication: MENIERE'S DISEASE
     Dates: start: 20021001
  7. DECORTIN 20 [Concomitant]
     Indication: RHEUMATOID ARTHRITIS
     Dates: start: 20041207

REACTIONS (7)
  - ATELECTASIS [None]
  - HAEMOPTYSIS [None]
  - HEPATOCELLULAR DAMAGE [None]
  - MENIERE'S DISEASE [None]
  - PLEURISY [None]
  - PNEUMONITIS [None]
  - RENAL FAILURE [None]
